FAERS Safety Report 21404011 (Version 2)
Quarter: 2022Q4

REPORT INFORMATION
  Report Type: Spontaneous
  Country: US (occurrence: US)
  Receive Date: 20221003
  Receipt Date: 20221005
  Transmission Date: 20230112
  Serious: Yes (Other)
  Sender: FDA-Public Use
  Company Number: US-PFIZER INC-202201197580

PATIENT
  Age: 85 Year
  Sex: Male

DRUGS (1)
  1. CIBINQO [Suspect]
     Active Substance: ABROCITINIB
     Dosage: 100 MG, DAILY

REACTIONS (11)
  - Adrenocortical insufficiency acute [Unknown]
  - Sepsis [Unknown]
  - Overdose [Unknown]
  - Leukopenia [Unknown]
  - Infection [Unknown]
  - Platelet count decreased [Unknown]
  - Lymphocyte count decreased [Unknown]
  - Herpes zoster [Unknown]
  - Urinary tract infection [Unknown]
  - Body temperature decreased [Unknown]
  - Creatinine renal clearance decreased [Unknown]
